FAERS Safety Report 6928978-2 (Version None)
Quarter: 2010Q3

REPORT INFORMATION
  Report Type: 
  Country: None (occurrence: None)
  Receive Date: 20100817
  Receipt Date: 20100804
  Transmission Date: 20110219
  Serious: Yes (Hospitalization, Other)
  Sender: FDA-Public Use
  Company Number: US-ELI_LILLY_AND_COMPANY-US201004003934

PATIENT
  Sex: Female

DRUGS (6)
  1. FORTEO [Suspect]
     Indication: OSTEOPOROSIS
     Dosage: 20 UG, DAILY (1/D)
     Dates: start: 20100319, end: 20100401
  2. FORTEO [Suspect]
     Dosage: 20 UG, DAILY (1/D)
     Dates: start: 20100407
  3. VITAMINS [Concomitant]
  4. CALCIUM [Concomitant]
  5. DIOVAN [Concomitant]
  6. REQUIP [Concomitant]

REACTIONS (3)
  - BLOOD POTASSIUM DECREASED [None]
  - DIARRHOEA [None]
  - LOSS OF CONSCIOUSNESS [None]
